FAERS Safety Report 19547967 (Version 1)
Quarter: 2021Q3

REPORT INFORMATION
  Report Type: Spontaneous
  Country: IT (occurrence: IT)
  Receive Date: 20210715
  Receipt Date: 20210715
  Transmission Date: 20211014
  Serious: Yes (Hospitalization, Other)
  Sender: FDA-Public Use
  Company Number: IT-HIKMA PHARMACEUTICALS USA INC.-IT-H14001-21-03242

PATIENT
  Age: 51 Year
  Sex: Female

DRUGS (15)
  1. PHENYTOIN. [Suspect]
     Active Substance: PHENYTOIN
     Indication: PARTIAL SEIZURES
     Route: 065
  2. PHENYTOIN. [Suspect]
     Active Substance: PHENYTOIN
     Dosage: UNKNOWN
     Route: 065
  3. GENTAMICIN. [Concomitant]
     Active Substance: GENTAMICIN
     Dosage: UNKNOWN
  4. INSULIN [Concomitant]
     Active Substance: INSULIN NOS
     Indication: DIABETES MELLITUS
     Dosage: UNKNOWN
     Route: 065
  5. LEVETIRACETAM. [Concomitant]
     Active Substance: LEVETIRACETAM
     Indication: PARTIAL SEIZURES
     Dosage: UNKNOWN
     Route: 065
  6. AMIODARONE [Concomitant]
     Active Substance: AMIODARONE
     Indication: VENTRICULAR TACHYCARDIA
     Route: 040
  7. VALPROATE [Concomitant]
     Active Substance: VALPROIC ACID
     Indication: PARTIAL SEIZURES
     Dosage: UNKNOWN
     Route: 065
  8. GENTAMICIN. [Concomitant]
     Active Substance: GENTAMICIN
     Dosage: UNKNOWN
     Route: 065
  9. PROPOFOL. [Concomitant]
     Active Substance: PROPOFOL
     Dosage: UNKNOWN
     Route: 065
  10. CLINDAMYCIN. [Concomitant]
     Active Substance: CLINDAMYCIN
     Indication: PYOMETRA
     Dosage: UNKNOWN
     Route: 065
  11. CLINDAMYCIN. [Concomitant]
     Active Substance: CLINDAMYCIN
     Dosage: UNKNOWN
     Route: 065
  12. DIAZEPAM. [Concomitant]
     Active Substance: DIAZEPAM
     Indication: SEIZURE
     Route: 040
  13. RAMIPRIL. [Concomitant]
     Active Substance: RAMIPRIL
     Indication: HYPERTENSION
     Route: 065
  14. FLUFENAZIN [Concomitant]
     Indication: PERSONALITY DISORDER
     Dosage: UNKNOWN
     Route: 065
  15. PROPOFOL. [Concomitant]
     Active Substance: PROPOFOL
     Indication: PARTIAL SEIZURES
     Dosage: UNKNOWN
     Route: 065

REACTIONS (2)
  - Stress cardiomyopathy [Recovered/Resolved]
  - Cardiotoxicity [Recovered/Resolved]
